FAERS Safety Report 9516993 (Version 4)
Quarter: 2013Q4

REPORT INFORMATION
  Report Type: Spontaneous
  Country: FR (occurrence: FR)
  Receive Date: 20130911
  Receipt Date: 20131112
  Transmission Date: 20140711
  Serious: Yes (Life-Threatening, Hospitalization, Other)
  Sender: FDA-Public Use
  Company Number: FR-BAXTER-2013BAX034970

PATIENT
  Age: 59 Year
  Sex: Female

DRUGS (36)
  1. UROMITEXAN 400MG/4ML SOLUTION FOR INJECTION [Suspect]
     Indication: METASTASES TO PERITONEUM
     Route: 042
     Dates: start: 20130722
  2. UROMITEXAN 400MG/4ML SOLUTION FOR INJECTION [Suspect]
     Route: 042
     Dates: start: 20130812
  3. UROMITEXAN 400MG/4ML SOLUTION FOR INJECTION [Suspect]
     Route: 042
     Dates: start: 20130903, end: 20130910
  4. IFOSFAMIDE EG [Suspect]
     Indication: METASTASES TO PERITONEUM
     Route: 042
     Dates: start: 20130722
  5. IFOSFAMIDE EG [Suspect]
     Route: 042
     Dates: start: 20130812
  6. IFOSFAMIDE EG [Suspect]
     Route: 042
     Dates: start: 20130903, end: 20130910
  7. DOXORUBICINE EBEWE [Suspect]
     Indication: METASTASES TO PERITONEUM
     Route: 042
     Dates: start: 20130722
  8. DOXORUBICINE EBEWE [Suspect]
     Route: 042
     Dates: start: 20130812
  9. DOXORUBICINE EBEWE [Suspect]
     Route: 042
     Dates: start: 20130903
  10. DOXORUBICINE EBEWE [Suspect]
     Route: 042
     Dates: start: 20131015
  11. SOLUMEDROL [Suspect]
     Indication: METASTASES TO PERITONEUM
     Route: 042
     Dates: start: 20130722
  12. SOLUMEDROL [Suspect]
     Route: 042
     Dates: start: 20130812
  13. SOLUMEDROL [Suspect]
     Route: 042
     Dates: start: 20130903
  14. ONDANSETRON [Suspect]
     Indication: METASTASES TO PERITONEUM
     Route: 042
     Dates: start: 20130722
  15. ONDANSETRON [Suspect]
     Route: 042
     Dates: start: 20130812
  16. ONDANSETRON [Suspect]
     Route: 042
     Dates: start: 20130903
  17. EMEND [Suspect]
     Indication: METASTASES TO PERITONEUM
     Route: 048
     Dates: start: 20130722
  18. EMEND [Suspect]
     Route: 048
     Dates: start: 20130812
  19. EMEND [Suspect]
     Route: 048
     Dates: start: 20130903
  20. THYROXINE SODIUM [Concomitant]
     Indication: PRODUCT USED FOR UNKNOWN INDICATION
     Route: 065
  21. THYROXINE SODIUM [Concomitant]
     Route: 065
     Dates: start: 20130809
  22. ESOMEPRAZOLE [Concomitant]
     Indication: PRODUCT USED FOR UNKNOWN INDICATION
     Route: 065
  23. ESOMEPRAZOLE [Concomitant]
     Route: 065
     Dates: start: 20130809
  24. TOPALGIC LP [Concomitant]
     Indication: PRODUCT USED FOR UNKNOWN INDICATION
     Route: 065
  25. TOPALGIC LP [Concomitant]
     Route: 065
  26. TOPALGIC LP [Concomitant]
     Route: 065
     Dates: start: 20130809
  27. TOPALGIC LP [Concomitant]
     Route: 065
     Dates: start: 20130809
  28. METOCLOPRAMIDE [Concomitant]
     Indication: PRODUCT USED FOR UNKNOWN INDICATION
     Route: 065
     Dates: start: 20130809
  29. FUROSEMIDE [Concomitant]
     Indication: PRODUCT USED FOR UNKNOWN INDICATION
     Route: 065
     Dates: start: 20130809
  30. MACROGOL [Concomitant]
     Indication: PRODUCT USED FOR UNKNOWN INDICATION
     Route: 065
     Dates: start: 20130809
  31. BICARBONATE [Concomitant]
     Indication: PRODUCT USED FOR UNKNOWN INDICATION
     Route: 065
     Dates: start: 20130809
  32. ROCEPHINE [Concomitant]
     Indication: PRODUCT USED FOR UNKNOWN INDICATION
     Route: 065
     Dates: start: 20130809
  33. GENTAMICIN [Concomitant]
     Indication: PRODUCT USED FOR UNKNOWN INDICATION
     Route: 065
  34. OFLOXACINE [Concomitant]
     Indication: ESCHERICHIA INFECTION
     Route: 065
  35. ROCEPHINE [Concomitant]
     Indication: ESCHERICHIA INFECTION
     Route: 065
  36. LETROZOLE [Concomitant]
     Indication: PRODUCT USED FOR UNKNOWN INDICATION
     Route: 065
     Dates: start: 2010, end: 2011

REACTIONS (8)
  - Toxic encephalopathy [Recovered/Resolved]
  - Febrile bone marrow aplasia [Unknown]
  - Renal failure acute [Recovered/Resolved]
  - Hyponatraemia [Recovered/Resolved]
  - Renal failure [Unknown]
  - Encephalopathy [Unknown]
  - Hyponatraemia [Recovered/Resolved]
  - Weight increased [Recovered/Resolved]
